FAERS Safety Report 5700529-X (Version None)
Quarter: 2008Q2

REPORT INFORMATION
  Report Type: 
  Country: None (occurrence: None)
  Receive Date: 20080410
  Receipt Date: 20080311
  Transmission Date: 20081010
  Serious: Yes (Other)
  Sender: FDA-Public Use
  Company Number: US-JNJFOC-20080106038

PATIENT
  Sex: Female
  Weight: 61.24 kg

DRUGS (1)
  1. ARESTIN [Suspect]
     Indication: DRUG USE FOR UNKNOWN INDICATION
     Route: 004

REACTIONS (4)
  - DENTAL FISTULA [None]
  - TOOTH ABSCESS [None]
  - TOOTH INFECTION [None]
  - TOOTHACHE [None]
